FAERS Safety Report 17980489 (Version 1)
Quarter: 2020Q3

REPORT INFORMATION
  Report Type: Spontaneous
  Country: GB (occurrence: GB)
  Receive Date: 20200704
  Receipt Date: 20200704
  Transmission Date: 20201103
  Serious: Yes (Disabling)
  Sender: FDA-Public Use
  Company Number: GB-TEVA-2020-GB-1794237

PATIENT
  Age: 89 Year
  Sex: Male
  Weight: 70 kg

DRUGS (14)
  1. LANSOPRAZOLE. [Concomitant]
     Active Substance: LANSOPRAZOLE
     Dosage: INSTEAD RANITIDINE, 15 MG
     Dates: start: 20200428
  2. DOCUSATE [Concomitant]
     Active Substance: DOCUSATE
     Dosage: 200 MG
     Dates: start: 20200427, end: 20200526
  3. BICALUTAMIDE. [Concomitant]
     Active Substance: BICALUTAMIDE
     Dosage: 150 MG
     Dates: start: 20200526
  4. CLARITHROMYCIN. [Concomitant]
     Active Substance: CLARITHROMYCIN
     Dosage: 1000 MG
     Dates: start: 20200406
  5. FINASTERIDE. [Suspect]
     Active Substance: FINASTERIDE
     Dosage: 5 MG
  6. FOLIC ACID. [Concomitant]
     Active Substance: FOLIC ACID
     Dosage: 5 MG
     Dates: start: 20200427
  7. TRIMBOW [Concomitant]
     Active Substance: BECLOMETHASONE DIPROPIONATE\FORMOTEROL FUMARATE\GLYCOPYRROLATE
     Dosage: 87MICROGRAMS/DOSE / 5MICROGRAMS/DOSE / 9MICROGRAM..., 2 DOSAGE FORM
     Dates: start: 20200427
  8. FUSIDIC ACID [Concomitant]
     Active Substance: FUSIDIC ACID
     Dosage: APPLY 3 TO 4 TIMES DAILY, 1 DOSAGE FORM
     Dates: start: 20200323
  9. DOCUSATE [Concomitant]
     Active Substance: DOCUSATE
     Dosage: 200 MG
     Dates: start: 20200428
  10. NIZATIDINE. [Concomitant]
     Active Substance: NIZATIDINE
     Dosage: WHILST RANITIDINE IS UNAVAILABLE, 300 MG
     Dates: start: 20200403
  11. RANITIDINE. [Concomitant]
     Active Substance: RANITIDINE
     Dosage: 300 MG
     Dates: start: 20200427, end: 20200526
  12. DOXYCYCLINE. [Concomitant]
     Active Substance: DOXYCYCLINE
     Dosage: 2 IMMEDIATELY, THEN 1 DAILY, 100 MG
     Dates: start: 20200330
  13. CASSIA [Concomitant]
     Dosage: 15 MG
     Dates: start: 20200427
  14. CALCICHEW D3 [Concomitant]
     Active Substance: CALCIUM\CHOLECALCIFEROL
     Dosage: 2 DOSAGE FORM
     Dates: start: 20200427

REACTIONS (1)
  - Confusional state [Recovering/Resolving]

NARRATIVE: CASE EVENT DATE: 20200514
